FAERS Safety Report 21628032 (Version 1)
Quarter: 2022Q4

REPORT INFORMATION
  Report Type: Spontaneous
  Country: US (occurrence: US)
  Receive Date: 20221122
  Receipt Date: 20221122
  Transmission Date: 20230113
  Serious: No
  Sender: FDA-Public Use
  Company Number: US-TRIS PHARMA, INC.-22US010523

PATIENT

DRUGS (4)
  1. QUILLICHEW ER [Suspect]
     Active Substance: METHYLPHENIDATE HYDROCHLORIDE
     Indication: Attention deficit hyperactivity disorder
     Dosage: 40 MILLIGRAM, QD
     Route: 048
     Dates: start: 202204
  2. DEXTROAMPHETAMINE HYDROCHLORIDE [Concomitant]
     Active Substance: DEXTROAMPHETAMINE HYDROCHLORIDE
     Indication: Attention deficit hyperactivity disorder
     Dosage: 10 MILLIGRAM, QD
     Route: 048
  3. TRAZODONE [Concomitant]
     Active Substance: TRAZODONE HYDROCHLORIDE
     Indication: Sleep disorder
     Dosage: 50 MILLIGRAM, BEDTIME
     Route: 048
  4. BUPROPION [Concomitant]
     Active Substance: BUPROPION
     Indication: Attention deficit hyperactivity disorder
     Dosage: 150 MILLIGRAM, QD
     Route: 048

REACTIONS (1)
  - Anxiety [Not Recovered/Not Resolved]
